FAERS Safety Report 9790549 (Version 3)
Quarter: 2014Q1

REPORT INFORMATION
  Report Type: Spontaneous
  Country: JP (occurrence: JP)
  Receive Date: 20131231
  Receipt Date: 20140210
  Transmission Date: 20141002
  Serious: Yes (Other)
  Sender: FDA-Public Use
  Company Number: JP-PFIZER INC-2013370784

PATIENT
  Age: 79 Year
  Sex: Male

DRUGS (3)
  1. ZYVOX [Suspect]
     Dosage: 600 MG, 2X/DAY
     Route: 042
     Dates: start: 20131220
  2. ZYVOX [Suspect]
     Dosage: 800 MG, DAILY
     Route: 042
  3. VANCOMYCIN HYDROCHLORIDE [Suspect]

REACTIONS (1)
  - Renal impairment [Recovered/Resolved]
